FAERS Safety Report 7867135-2 (Version None)
Quarter: 2011Q4

REPORT INFORMATION
  Report Type: 
  Country: None (occurrence: None)
  Receive Date: 20111028
  Receipt Date: 20111018
  Transmission Date: 20120403
  Serious: Yes (Other)
  Sender: FDA-Public Use
  Company Number: BR-BRISTOL-MYERS SQUIBB COMPANY-16176919

PATIENT
  Age: 82 Year
  Sex: Male
  Weight: 66 kg

DRUGS (7)
  1. ENDOFOLIN [Concomitant]
     Indication: RENAL DISORDER
     Dosage: TABS
     Route: 048
  2. IRBESARTAN + HYDROCHLOROTHIAZIDE [Suspect]
     Indication: CARDIAC DISORDER
     Dosage: 1DF=300MG/12.5MG TABS, 1 TABS A DAY AFTER LUNCH
     Route: 048
  3. ASPIRIN [Concomitant]
     Dosage: TABS
     Route: 048
  4. IRBESARTAN + HYDROCHLOROTHIAZIDE [Suspect]
     Indication: HYPERTENSION
     Dosage: 1DF=300MG/12.5MG TABS, 1 TABS A DAY AFTER LUNCH
     Route: 048
  5. UNOPROSTONE [Concomitant]
     Indication: PROSTATIC OPERATION
     Dosage: TABS
     Route: 048
     Dates: start: 20040101
  6. OLCADIL [Concomitant]
     Indication: SLEEP DISORDER
     Dosage: 1 TAB DAILY AT NIGHT
     Route: 048
  7. SYNTHROID [Concomitant]
     Indication: THROAT CANCER
     Dosage: 1 TAB, 0.5HR BERFORE BREAKFAST
     Route: 048

REACTIONS (1)
  - THROAT CANCER [None]
